FAERS Safety Report 16121516 (Version 2)
Quarter: 2019Q3

REPORT INFORMATION
  Report Type: Spontaneous
  Country: US (occurrence: US)
  Receive Date: 20190327
  Receipt Date: 20190820
  Transmission Date: 20191004
  Serious: Yes (Hospitalization, Other)
  Sender: FDA-Public Use
  Company Number: US-ABBVIE-19K-163-2715225-00

PATIENT
  Age: 53 Year
  Sex: Female
  Weight: 89.44 kg

DRUGS (15)
  1. TRIAMTERENE + HCTZ [Concomitant]
     Active Substance: HYDROCHLOROTHIAZIDE\TRIAMTERENE
     Indication: JOINT SWELLING
     Route: 065
  2. CYCLOBENZAPRINE. [Concomitant]
     Active Substance: CYCLOBENZAPRINE
     Indication: NERVE COMPRESSION
  3. XANAX XR [Concomitant]
     Active Substance: ALPRAZOLAM
     Indication: PRODUCT USED FOR UNKNOWN INDICATION
  4. HUMIRA [Suspect]
     Active Substance: ADALIMUMAB
     Route: 058
     Dates: start: 201805, end: 201809
  5. POTASSIUM CHLORIDE. [Concomitant]
     Active Substance: POTASSIUM CHLORIDE
     Indication: BLOOD POTASSIUM DECREASED
     Route: 065
  6. OMEPRAZOLE. [Concomitant]
     Active Substance: OMEPRAZOLE
     Indication: GASTROOESOPHAGEAL REFLUX DISEASE
     Route: 065
  7. HUMIRA [Suspect]
     Active Substance: ADALIMUMAB
     Route: 058
     Dates: start: 2016, end: 201804
  8. ALPRAZOLAM. [Concomitant]
     Active Substance: ALPRAZOLAM
     Indication: ANXIETY
     Route: 065
  9. METFORMIN [Concomitant]
     Active Substance: METFORMIN HYDROCHLORIDE
     Indication: PRODUCT USED FOR UNKNOWN INDICATION
  10. HUMIRA [Suspect]
     Active Substance: ADALIMUMAB
     Indication: PYODERMA GANGRENOSUM
     Route: 058
     Dates: start: 2016, end: 2016
  11. GABAPENTIN. [Concomitant]
     Active Substance: GABAPENTIN
     Indication: NEUROPATHY PERIPHERAL
     Route: 065
  12. HUMIRA [Suspect]
     Active Substance: ADALIMUMAB
     Indication: CROHN^S DISEASE
     Route: 058
     Dates: start: 20190321, end: 20190321
  13. HUMIRA [Suspect]
     Active Substance: ADALIMUMAB
     Indication: PYODERMA GANGRENOSUM
     Route: 058
  14. CYCLOBENZAPRINE. [Concomitant]
     Active Substance: CYCLOBENZAPRINE
     Indication: MUSCLE RELAXANT THERAPY
     Route: 065
  15. HUMIRA [Suspect]
     Active Substance: ADALIMUMAB
     Indication: CROHN^S DISEASE
     Route: 058
     Dates: start: 2016, end: 2016

REACTIONS (30)
  - Procedural pain [Recovered/Resolved]
  - Incorrect dose administered [Unknown]
  - Muscle rupture [Recovered/Resolved]
  - Post procedural discharge [Recovered/Resolved]
  - Dizziness [Unknown]
  - Injection site pain [Not Recovered/Not Resolved]
  - Pain [Not Recovered/Not Resolved]
  - Hernia [Recovered/Resolved]
  - Fistula [Not Recovered/Not Resolved]
  - Procedural pain [Recovered/Resolved]
  - Post procedural swelling [Unknown]
  - Wound secretion [Not Recovered/Not Resolved]
  - Wound dehiscence [Not Recovered/Not Resolved]
  - Fat necrosis [Recovered/Resolved]
  - Pyoderma gangrenosum [Not Recovered/Not Resolved]
  - Myalgia [Recovering/Resolving]
  - Discomfort [Not Recovered/Not Resolved]
  - Hernia [Recovered/Resolved]
  - Abdominal distension [Recovered/Resolved]
  - Drug level decreased [Unknown]
  - Influenza [Unknown]
  - Abdominal adhesions [Recovered/Resolved]
  - Erythema [Recovered/Resolved]
  - Syncope [Recovered/Resolved]
  - Pyrexia [Recovered/Resolved]
  - Wrong technique in product usage process [Unknown]
  - Device issue [Unknown]
  - Malaise [Unknown]
  - Hypoaesthesia [Not Recovered/Not Resolved]
  - White blood cell count increased [Unknown]

NARRATIVE: CASE EVENT DATE: 2016
